FAERS Safety Report 10192028 (Version 1)
Quarter: 2014Q2

REPORT INFORMATION
  Report Type: Spontaneous
  Country: CA (occurrence: CA)
  Receive Date: 20140523
  Receipt Date: 20140523
  Transmission Date: 20141212
  Serious: Yes (Other)
  Sender: FDA-Public Use
  Company Number: CA-PFIZER INC-2014140347

PATIENT
  Age: 3 Week
  Sex: 0
  Weight: 3 kg

DRUGS (9)
  1. AMLODIPINE BESILATE [Suspect]
     Dosage: UNK
     Route: 064
  2. AZITHROMYCIN [Suspect]
     Dosage: UNK
     Route: 064
  3. ABACAVIR [Suspect]
     Dosage: UNK DOSE 2X/DAY
     Route: 064
  4. CEFOTAXIME [Suspect]
     Dosage: UNK
     Route: 064
  5. INTELENCE [Suspect]
     Dosage: 200 MG, 2X/DAY
     Route: 064
  6. MONOPRIL [Suspect]
     Dosage: UNK
     Route: 064
  7. PREZISTA [Suspect]
     Dosage: 600 MG, 2X/DAY
     Route: 064
  8. RITONAVIR [Suspect]
     Dosage: 100 MG, 2X/DAY
     Route: 064
  9. TENOFOVIR [Suspect]
     Dosage: 300 MG, 1X/DAY
     Route: 064

REACTIONS (3)
  - Maternal exposure during pregnancy [Recovered/Resolved]
  - Anaemia [Recovered/Resolved]
  - Blood lactic acid increased [Recovered/Resolved]
